FAERS Safety Report 5940066-0 (Version None)
Quarter: 2008Q4

REPORT INFORMATION
  Report Type: 
  Country: None (occurrence: None)
  Receive Date: 20081104
  Receipt Date: 20081027
  Transmission Date: 20090506
  Serious: Yes (Hospitalization, Other)
  Sender: FDA-Public Use
  Company Number: PHHY2008JP25793

PATIENT
  Age: 70 Year
  Sex: Female

DRUGS (2)
  1. AREDIA [Suspect]
     Dosage: 30 MG/DOSE X 13
     Route: 042
     Dates: start: 20050530, end: 20060626
  2. ZOMETA [Suspect]
     Dosage: 4 MG/DOSE X 13
     Route: 042
     Dates: start: 20060724, end: 20070709

REACTIONS (9)
  - DEBRIDEMENT [None]
  - DYSARTHRIA [None]
  - INCISIONAL DRAINAGE [None]
  - INFECTION [None]
  - JAW OPERATION [None]
  - OSTEONECROSIS [None]
  - PAIN IN JAW [None]
  - SWELLING [None]
  - TOOTH EXTRACTION [None]
